FAERS Safety Report 9240052 (Version 1)
Quarter: 2013Q2

REPORT INFORMATION
  Report Type: Spontaneous
  Country: US (occurrence: US)
  Receive Date: 20130418
  Receipt Date: 20130418
  Transmission Date: 20140414
  Serious: Yes (Other)
  Sender: FDA-Public Use
  Company Number: US-PFIZER INC-2013119909

PATIENT
  Sex: Female

DRUGS (3)
  1. ZOLOFT [Suspect]
     Indication: DEPRESSION
     Dosage: UNK
     Dates: start: 201201, end: 2012
  2. SERTRALINE [Suspect]
     Indication: DEPRESSION
     Dosage: UNK
     Dates: start: 2012, end: 2012
  3. CYMBALTA [Suspect]
     Dosage: UNK
     Dates: start: 2012, end: 2012

REACTIONS (2)
  - Hallucination [Unknown]
  - Drug ineffective [Unknown]
